FAERS Safety Report 8873363 (Version 1)
Quarter: 2012Q4

REPORT INFORMATION
  Report Type: 
  Country: US (occurrence: US)
  Receive Date: 20121023
  Receipt Date: 20121023
  Transmission Date: 20130627
  Serious: Yes (Other)
  Sender: FDA-Public Use
  Company Number: US-ASTELLAS-2012US007805

PATIENT
  Sex: Female

DRUGS (1)
  1. LEXISCAN [Suspect]
     Indication: PRODUCT USED FOR UNKNOWN INDICATION
     Dosage: UNK
     Route: 042
     Dates: start: 20120911, end: 20120911

REACTIONS (4)
  - Electrocardiogram ST segment depression [Unknown]
  - Chest pain [Unknown]
  - Abdominal discomfort [Unknown]
  - Diarrhoea [Unknown]
